FAERS Safety Report 23513619 (Version 8)
Quarter: 2025Q2

REPORT INFORMATION
  Report Type: Spontaneous
  Country: US (occurrence: US)
  Receive Date: 20240212
  Receipt Date: 20250630
  Transmission Date: 20250717
  Serious: Yes (Disabling, Other)
  Sender: PFIZER
  Company Number: US-PFIZER INC-PV202300189611

PATIENT
  Age: 75 Year
  Sex: Female
  Weight: 58.957 kg

DRUGS (27)
  1. INLYTA [Suspect]
     Active Substance: AXITINIB
     Indication: Obesity
     Dosage: 25 MG (3 TABLETS IN AM AND 2 TABLETS IN PM)
     Route: 048
  2. INLYTA [Suspect]
     Active Substance: AXITINIB
     Indication: Neoplasm malignant
     Dosage: 5 MG (TAKE 3 TABLETS IN AM AND 2 TABLETS IN PM)
     Route: 048
  3. INLYTA [Suspect]
     Active Substance: AXITINIB
     Indication: Obesity
     Route: 048
  4. INLYTA [Suspect]
     Active Substance: AXITINIB
     Dosage: (1MG TABLET, 3 TABS QAM, 2 TABS QPM)
     Route: 048
  5. INLYTA [Suspect]
     Active Substance: AXITINIB
     Dosage: AXITINIB 1 MG ORAL TABLET (INLYTA): TAKE 2 TABLETS BY MOUTH NIGHTLY
     Route: 048
  6. INLYTA [Suspect]
     Active Substance: AXITINIB
     Dosage: TAKE 3 TABLETS BY MOUTH EVERY MORNING.
     Route: 048
  7. POTASSIUM CHLORIDE [Concomitant]
     Active Substance: POTASSIUM CHLORIDE
     Dosage: 2 (TWO) TABLETS QD,POTASSIUM CHLORIDE CRYS ER
     Route: 048
     Dates: start: 20231003
  8. HYDROCORTISONE [Concomitant]
     Active Substance: HYDROCORTISONE
     Dosage: 3 (THREE) TABLETS QAM AND ONE Q DINNER
     Route: 048
     Dates: start: 20230920
  9. SYNTHROID [Concomitant]
     Active Substance: LEVOTHYROXINE SODIUM
     Route: 048
     Dates: start: 20230811
  10. CALCITRIOL [Concomitant]
     Active Substance: CALCITRIOL
     Indication: Hypothyroidism
     Dosage: 1 (ONE) CAPSULE PO QHS EVERY OTHER DAY
     Route: 048
     Dates: start: 20230807
  11. HUMALOG [Concomitant]
     Active Substance: INSULIN LISPRO
     Dosage: 1 (ONE) EACH INJECT UP TO 50 UNITS DAILY PER SLIDING SCALE, 15 EACH, 90 DAYS
     Route: 058
     Dates: start: 20230403
  12. METOPROLOL TARTRATE [Concomitant]
     Active Substance: METOPROLOL TARTRATE
     Dosage: (TWO) TABLET PO BID
     Route: 048
     Dates: start: 20220726
  13. LANTUS SOLOSTAR [Concomitant]
     Active Substance: INSULIN GLARGINE
     Indication: Diabetes mellitus
     Dosage: 1 (ONE) SOLUTION PEN-INJECTOR INJECTING 16 UNITS SQ QHS
     Route: 058
     Dates: start: 20220726
  14. LANTUS SOLOSTAR [Concomitant]
     Active Substance: INSULIN GLARGINE
     Indication: Iatrogenic injury
  15. LOSARTAN POTASSIUM [Concomitant]
     Active Substance: LOSARTAN POTASSIUM
     Dosage: 1 TAB PO DAILY
     Route: 048
  16. IMODIUM [Concomitant]
     Active Substance: LOPERAMIDE HYDROCHLORIDE
     Route: 048
  17. POLYETHYLENE GLYCOL\PROPYLENE GLYCOL [Concomitant]
     Active Substance: POLYETHYLENE GLYCOL\PROPYLENE GLYCOL
     Route: 047
  18. MAGNESIUM [Concomitant]
     Active Substance: MAGNESIUM
     Dosage: 1 TAB PO QD
     Route: 048
  19. ONDANSETRON [Concomitant]
     Active Substance: ONDANSETRON
     Route: 048
  20. KEYTRUDA [Concomitant]
     Active Substance: PEMBROLIZUMAB
     Dosage: 200 MG ONCE EVERY 3 WEEKS
     Route: 042
  21. OMEPRAZOLE [Concomitant]
     Active Substance: OMEPRAZOLE
     Route: 048
  22. FERROUS GLUCONATE [Concomitant]
     Active Substance: FERROUS GLUCONATE
     Dosage: 1 TAB PO QHS
     Route: 048
  23. AMLODIPINE BESYLATE [Concomitant]
     Active Substance: AMLODIPINE BESYLATE
     Dosage: 1 TAB PO QD
     Route: 048
  24. CALCIUM\VITAMIN D [Concomitant]
     Active Substance: CALCIUM\VITAMIN D
     Dosage: 1000 MG EFFER, 2 TABS DAILY
     Route: 048
  25. ATORVASTATIN CALCIUM [Concomitant]
     Active Substance: ATORVASTATIN CALCIUM
     Dosage: 1 PO QD
     Route: 048
  26. ASPIRIN [Concomitant]
     Active Substance: ASPIRIN
     Dosage: 81 MG TABLET DR, 1 QD
     Route: 048
  27. GLUCOSAMINE CHONDROITIN COMPLEX [CHONDROITIN SULFATE;CITROFLAVONOID;GL [Concomitant]
     Dosage: (1 ORAL TWO TIMES DAILY)
     Route: 048

REACTIONS (4)
  - Blindness [Unknown]
  - Off label use [Unknown]
  - Diarrhoea [Unknown]
  - Stomatitis [Unknown]
